FAERS Safety Report 17176255 (Version 3)
Quarter: 2020Q2

REPORT INFORMATION
  Report Type: Spontaneous
  Country: US (occurrence: US)
  Receive Date: 20191219
  Receipt Date: 20200402
  Transmission Date: 20200713
  Serious: No
  Sender: FDA-Public Use
  Company Number: US-JNJFOC-20191216815

PATIENT
  Age: 51 Year
  Sex: Female
  Weight: 68.1 kg

DRUGS (1)
  1. MENS ROGAINE EXTRA STRENGTH [Suspect]
     Active Substance: MINOXIDIL
     Indication: ALOPECIA
     Dosage: CAP FULL
     Route: 061
     Dates: start: 20191101

REACTIONS (5)
  - Product use issue [Unknown]
  - Off label use [Unknown]
  - Product formulation issue [Unknown]
  - Poor quality product administered [Unknown]
  - Overdose [Unknown]

NARRATIVE: CASE EVENT DATE: 20191101
